FAERS Safety Report 23473654 (Version 1)
Quarter: 2024Q1

REPORT INFORMATION
  Report Type: Spontaneous
  Country: US (occurrence: US)
  Receive Date: 20240203
  Receipt Date: 20240203
  Transmission Date: 20240409
  Serious: No
  Sender: FDA-Public Use
  Company Number: US-DAIICHI SANKYO, INC.-DSU-2024-104903AA

PATIENT
  Sex: Male

DRUGS (1)
  1. TURALIO [Suspect]
     Active Substance: PEXIDARTINIB HYDROCHLORIDE
     Indication: Giant cell tumour of tendon sheath
     Dosage: 125MG EVERY MORNING 250MG EVERY EVENING, BID
     Route: 048
     Dates: start: 20231206

REACTIONS (3)
  - Product dose omission issue [Recovered/Resolved]
  - Product use issue [Recovered/Resolved]
  - No adverse event [Unknown]
